FAERS Safety Report 8320515-3 (Version None)
Quarter: 2012Q2

REPORT INFORMATION
  Report Type: 
  Country: None (occurrence: None)
  Receive Date: 20120427
  Receipt Date: 20120427
  Transmission Date: 20120825
  Serious: Yes (Hospitalization)
  Sender: FDA-Public Use
  Company Number: None

PATIENT
  Sex: Female
  Weight: 77.11 kg

DRUGS (1)
  1. ENALAPRIL MALEATE [Suspect]
     Indication: BLOOD PRESSURE SYSTOLIC INCREASED
     Dosage: 1 INJECTION IN ARM
     Route: 042
     Dates: start: 20110219, end: 20110219

REACTIONS (5)
  - NAUSEA [None]
  - LABORATORY TEST ABNORMAL [None]
  - BLOOD PRESSURE FLUCTUATION [None]
  - CEREBROVASCULAR ACCIDENT [None]
  - ACTIVITIES OF DAILY LIVING IMPAIRED [None]
